FAERS Safety Report 4598063-6 (Version None)
Quarter: 2005Q1

REPORT INFORMATION
  Report Type: 
  Country: None (occurrence: None)
  Receive Date: 20050304
  Receipt Date: 20050217
  Transmission Date: 20050727
  Serious: Yes (Hospitalization)
  Sender: FDA-Public Use
  Company Number: FR-JNJFOC-20050107113

PATIENT
  Age: 86 Year
  Sex: Male

DRUGS (9)
  1. DAKTARIN [Suspect]
     Indication: DRUG USE FOR UNKNOWN INDICATION
     Route: 061
  2. PREVISCAN [Suspect]
     Indication: CEREBRAL ARTERY OCCLUSION
     Route: 049
     Dates: start: 20041213, end: 20041228
  3. PLAVIX [Suspect]
     Indication: CEREBRAL ARTERY OCCLUSION
     Route: 049
  4. CALCIPARINE [Suspect]
     Indication: CEREBRAL ARTERY OCCLUSION
     Route: 058
     Dates: start: 20041210, end: 20041224
  5. OMEPRAZOLE [Concomitant]
     Route: 065
  6. LASILIX [Concomitant]
     Route: 065
  7. DETENSIEL [Concomitant]
     Route: 065
  8. CASODEX [Concomitant]
     Route: 065
  9. NITRODERM [Concomitant]
     Route: 065

REACTIONS (5)
  - ARTERIAL THROMBOSIS LIMB [None]
  - BRAIN OEDEMA [None]
  - CEREBRAL HAEMATOMA [None]
  - CEREBRAL HAEMORRHAGE [None]
  - INTERNATIONAL NORMALISED RATIO INCREASED [None]
